FAERS Safety Report 10011270 (Version 1)
Quarter: 2014Q1

REPORT INFORMATION
  Report Type: Spontaneous
  Country: US (occurrence: US)
  Receive Date: 20140314
  Receipt Date: 20140314
  Transmission Date: 20141002
  Serious: Yes (Other)
  Sender: FDA-Public Use
  Company Number: US-JNJFOC-20140303703

PATIENT
  Age: 77 Year
  Sex: Female
  Weight: 70.31 kg

DRUGS (8)
  1. XARELTO [Suspect]
     Indication: CEREBROVASCULAR ACCIDENT PROPHYLAXIS
     Route: 048
     Dates: start: 201402
  2. XARELTO [Suspect]
     Indication: ATRIAL FIBRILLATION
     Route: 048
     Dates: start: 201402
  3. ASPIRIN [Concomitant]
     Indication: CARDIAC DISORDER
     Route: 048
  4. ATORVASTATIN [Concomitant]
     Indication: BLOOD CHOLESTEROL
     Route: 048
  5. METOPROLOL SUCCINATE [Concomitant]
     Indication: BLOOD PRESSURE
     Route: 048
     Dates: start: 201402
  6. ESCITALOPRAM [Concomitant]
     Indication: DEPRESSION
     Route: 048
  7. XALATAN [Concomitant]
     Indication: GLAUCOMA
     Dosage: 1 DROP
     Route: 047
  8. TIMOLOL [Concomitant]
     Indication: GLAUCOMA
     Dosage: 1 DROP
     Route: 047

REACTIONS (2)
  - Cyst rupture [Recovered/Resolved]
  - Chromaturia [Not Recovered/Not Resolved]
